FAERS Safety Report 5604837-2 (Version None)
Quarter: 2008Q1

REPORT INFORMATION
  Report Type: 
  Country: None (occurrence: None)
  Receive Date: 20080128
  Receipt Date: 20080117
  Transmission Date: 20080703
  Serious: Yes (Hospitalization)
  Sender: FDA-Public Use
  Company Number: GB-GENENTECH-254766

PATIENT
  Sex: Male

DRUGS (4)
  1. MABTHERA [Suspect]
     Indication: B-CELL LYMPHOMA
     Dosage: UNK, UNKNOWN
     Route: 065
     Dates: start: 20071005
  2. CYCLOPHOSPHAMIDE [Concomitant]
     Indication: B-CELL LYMPHOMA
     Dates: start: 20071005
  3. VINCRISTINE [Concomitant]
     Indication: B-CELL LYMPHOMA
     Dates: start: 20071005
  4. PREDNISOLONE [Concomitant]
     Indication: B-CELL LYMPHOMA
     Dates: start: 20071005

REACTIONS (1)
  - ACUTE RESPIRATORY DISTRESS SYNDROME [None]
